FAERS Safety Report 20479404 (Version 1)
Quarter: 2022Q1

REPORT INFORMATION
  Report Type: Spontaneous
  Country: US (occurrence: None)
  Receive Date: 20220216
  Receipt Date: 20220216
  Transmission Date: 20220423
  Serious: No
  Sender: FDA-Public Use
  Company Number: 2022A062501

PATIENT
  Sex: Male

DRUGS (1)
  1. EVUSHELD [Suspect]
     Active Substance: CILGAVIMAB\TIXAGEVIMAB
     Indication: Immune system disorder
     Dosage: 150 MG/1.5 ML (100 MG/ML) OF TIXAGEVIMAB, 150 MG/1.5 ML (100 MG/ML) OF CILGAVIMAB
     Route: 030
     Dates: start: 202202

REACTIONS (1)
  - Product use issue [Unknown]
